FAERS Safety Report 20227265 (Version 1)
Quarter: 2021Q4

REPORT INFORMATION
  Report Type: Spontaneous
  Country: CN (occurrence: CN)
  Receive Date: 20211224
  Receipt Date: 20211224
  Transmission Date: 20220303
  Serious: Yes (Hospitalization)
  Sender: FDA-Public Use
  Company Number: CN-BAXTER-2021BAX041792

PATIENT
  Age: 57 Year
  Sex: Female
  Weight: 75 kg

DRUGS (4)
  1. CYCLOPHOSPHAMIDE [Suspect]
     Active Substance: CYCLOPHOSPHAMIDE
     Indication: Breast cancer female
     Dosage: 0.9% SODIUM CHLORIDE INJECTION (100 ML) + CYCLOPHOSPHAMIDE FOR INJECTION (1000 MG)
     Route: 041
     Dates: start: 20211125, end: 20211125
  2. SODIUM CHLORIDE [Suspect]
     Active Substance: SODIUM CHLORIDE
     Indication: Medication dilution
     Dosage: 0.9% SODIUM CHLORIDE INJECTION (100 ML) + CYCLOPHOSPHAMIDE FOR INJECTION (1000 MG)
     Route: 041
     Dates: start: 20211125, end: 20211125
  3. DEXTROSE [Suspect]
     Active Substance: DEXTROSE
     Indication: Medication dilution
     Dosage: 5% GLUCOSE INJECTION (100 ML)+ PIRARUBICIN HYDROCHLORIDE FOR INJECTION (100 MG)
     Route: 041
     Dates: start: 20211125, end: 20211125
  4. PIRARUBICIN HYDROCHLORIDE [Suspect]
     Active Substance: PIRARUBICIN HYDROCHLORIDE
     Indication: Breast cancer female
     Dosage: 5% GLUCOSE INJECTION (100 ML)+ PIRARUBICIN HYDROCHLORIDE FOR INJECTION (100 MG)
     Route: 041
     Dates: start: 20211125, end: 20211125

REACTIONS (1)
  - Myelosuppression [Recovered/Resolved]

NARRATIVE: CASE EVENT DATE: 20211208
